FAERS Safety Report 8462742-0 (Version None)
Quarter: 2012Q2

REPORT INFORMATION
  Report Type: 
  Country: None (occurrence: None)
  Receive Date: 20120618
  Receipt Date: 20120618
  Transmission Date: 20120825
  Serious: Yes (Other)
  Sender: FDA-Public Use
  Company Number: None

PATIENT
  Sex: Female

DRUGS (3)
  1. NIASPAN [Suspect]
     Indication: BLOOD CHOLESTEROL INCREASED
     Dosage: 500MG ONCE A DAY PO
     Route: 048
     Dates: start: 20120614, end: 20120614
  2. ZETIA [Concomitant]
  3. LUNESTA [Concomitant]

REACTIONS (10)
  - NAUSEA [None]
  - SKIN BURNING SENSATION [None]
  - CHILLS [None]
  - EYE IRRITATION [None]
  - GENERALISED ERYTHEMA [None]
  - PALPITATIONS [None]
  - SWELLING FACE [None]
  - DIZZINESS [None]
  - THROAT IRRITATION [None]
  - PRURITUS [None]
